FAERS Safety Report 18693039 (Version 4)
Quarter: 2021Q1

REPORT INFORMATION
  Report Type: Spontaneous
  Country: CA (occurrence: CA)
  Receive Date: 20210104
  Receipt Date: 20210114
  Transmission Date: 20210419
  Serious: Yes (Other)
  Sender: FDA-Public Use
  Company Number: CA-CELLTRION INC.-2019CA024206

PATIENT

DRUGS (4)
  1. INFLECTRA [Suspect]
     Active Substance: INFLIXIMAB-DYYB
     Dosage: 270 MG (5 MG/KG) 0, 2, 6 WEEKS, THEN EVERY 6 WEEKS
     Route: 042
     Dates: start: 20191016, end: 20191016
  2. INFLECTRA [Suspect]
     Active Substance: INFLIXIMAB-DYYB
     Dosage: 270 MG (5MG/KG), EVERY 0, 2, 6 WEEKS, THEN EVERY 6 WEEKS
     Route: 042
     Dates: start: 20201224
  3. INFLECTRA [Suspect]
     Active Substance: INFLIXIMAB-DYYB
     Indication: ANKYLOSING SPONDYLITIS
     Dosage: 270 MG (5 MG/KG) 0, 2, 6 WEEKS, THEN EVERY 6 WEEKS
     Route: 042
     Dates: start: 20190906
  4. INFLECTRA [Suspect]
     Active Substance: INFLIXIMAB-DYYB
     Dosage: 270 MG (5MG/KG), EVERY 0, 2, 6 WEEKS, THEN EVERY 6 WEEKS
     Route: 042
     Dates: start: 20201224, end: 20201224

REACTIONS (23)
  - Arthralgia [Recovering/Resolving]
  - Pyrexia [Not Recovered/Not Resolved]
  - Nasal discharge discolouration [Unknown]
  - Peripheral swelling [Unknown]
  - Joint swelling [Not Recovered/Not Resolved]
  - Musculoskeletal chest pain [Recovering/Resolving]
  - Back pain [Recovering/Resolving]
  - Nausea [Unknown]
  - Secretion discharge [Unknown]
  - Seasonal allergy [Unknown]
  - Decreased appetite [Unknown]
  - Pharyngitis streptococcal [Unknown]
  - Abdominal pain upper [Recovering/Resolving]
  - Headache [Unknown]
  - Gait inability [Unknown]
  - Sinusitis [Unknown]
  - Fatigue [Unknown]
  - Dysstasia [Unknown]
  - Malaise [Unknown]
  - Hypokinesia [Unknown]
  - Chest pain [Unknown]
  - Erythema [Not Recovered/Not Resolved]
  - Hot flush [Unknown]

NARRATIVE: CASE EVENT DATE: 2019
